FAERS Safety Report 21218593 (Version 3)
Quarter: 2022Q3

REPORT INFORMATION
  Report Type: Spontaneous
  Country: US (occurrence: US)
  Receive Date: 20220816
  Receipt Date: 20220924
  Transmission Date: 20221027
  Serious: Yes (Other)
  Sender: FDA-Public Use
  Company Number: US-NOVARTISPH-NVSC2022US184139

PATIENT
  Sex: Female
  Weight: 4.07 kg

DRUGS (3)
  1. KESIMPTA [Suspect]
     Active Substance: OFATUMUMAB
     Indication: Foetal exposure during pregnancy
     Dosage: MATERNAL EXPOSURE DURING PREGNANCY DOSE OF 20 MG QMO WAS ADMINISTERED BY MOTHER
     Route: 064
     Dates: start: 20210325, end: 20220114
  2. MIRALAX [Concomitant]
     Active Substance: POLYETHYLENE GLYCOL 3350
     Indication: Foetal exposure during pregnancy
     Dosage: 17 G, QD (MATERNAL EXPOSURE DURING PREGNANCY AND DOSE OF 17 G QD WAS ADMINISTERED BY THE MOTHER)
     Route: 064
     Dates: start: 20220424
  3. PSYLLIUM [Concomitant]
     Active Substance: PLANTAGO SEED
     Indication: Foetal exposure during pregnancy
     Dosage: MATERNAL EXPOSURE DURING PREGNANCY AND DOSE OF SUSPECT DRUG 283 G, QD ADMINISTERED BY THE MOTHER
     Route: 064
     Dates: start: 20220424

REACTIONS (2)
  - Pyelocaliectasis [Unknown]
  - Foetal exposure during pregnancy [Unknown]
